FAERS Safety Report 11685233 (Version 1)
Quarter: 2015Q4

REPORT INFORMATION
  Report Type: Spontaneous
  Country: US (occurrence: None)
  Receive Date: 20151029
  Receipt Date: 20151029
  Transmission Date: 20160304
  Serious: Yes (Hospitalization)
  Sender: FDA-Public Use
  Company Number: None

PATIENT
  Age: 83 Year
  Sex: Female

DRUGS (1)
  1. STIVARGA [Suspect]
     Active Substance: REGORAFENIB
     Dosage: DAILY FOR 21 DAYS, OFF 7
     Route: 048
     Dates: start: 20150513

REACTIONS (2)
  - Therapy cessation [None]
  - Cardiac disorder [None]

NARRATIVE: CASE EVENT DATE: 20150808
